FAERS Safety Report 17490614 (Version 1)
Quarter: 2020Q1

REPORT INFORMATION
  Report Type: Spontaneous
  Country: US (occurrence: US)
  Receive Date: 20200303
  Receipt Date: 20200303
  Transmission Date: 20200409
  Serious: No
  Sender: FDA-Public Use
  Company Number: US-AKORN PHARMACEUTICALS-2019AKN01269

PATIENT
  Age: 15 Year
  Sex: Female
  Weight: 68.03 kg

DRUGS (4)
  1. MYORISAN [Suspect]
     Active Substance: ISOTRETINOIN
     Indication: ACNE
     Dosage: 70 MG DAILY (TOTAL DOSE)
     Route: 048
     Dates: start: 20190103, end: 20190403
  2. MYORISAN [Suspect]
     Active Substance: ISOTRETINOIN
     Dosage: 40 MG, 1X/DAY (BASED ON IPLEDGE DISPENSATION)
     Route: 048
     Dates: start: 20190404, end: 20190501
  3. MYORISAN [Suspect]
     Active Substance: ISOTRETINOIN
     Indication: ACNE
     Dosage: 70 MG DAILY (TOTAL DOSE)
     Route: 048
     Dates: start: 20190103, end: 20190403
  4. ORTHO TRI CYCLEN LO [Concomitant]
     Active Substance: ETHINYL ESTRADIOL\NORGESTIMATE

REACTIONS (3)
  - Off label use [Recovered/Resolved]
  - Xerosis [Recovered/Resolved]
  - Arthralgia [Recovered/Resolved]

NARRATIVE: CASE EVENT DATE: 2019
